FAERS Safety Report 19750591 (Version 1)
Quarter: 2021Q3

REPORT INFORMATION
  Report Type: Spontaneous
  Country: CA (occurrence: CA)
  Receive Date: 20210826
  Receipt Date: 20210826
  Transmission Date: 20211014
  Serious: Yes (Hospitalization)
  Sender: FDA-Public Use
  Company Number: CA-TEVA-2021-CA-1944576

PATIENT
  Age: 60 Year
  Sex: Female

DRUGS (14)
  1. ACETAMINOPHEN. [Concomitant]
     Active Substance: ACETAMINOPHEN
  2. DOCUSATE [Concomitant]
     Active Substance: DOCUSATE
  3. PANTOPRAZOLE [Concomitant]
     Active Substance: PANTOPRAZOLE
  4. DOMPERIDONE [Concomitant]
     Active Substance: DOMPERIDONE
  5. DULOXETINE. [Concomitant]
     Active Substance: DULOXETINE
  6. MYRBETRIQ [Concomitant]
     Active Substance: MIRABEGRON
  7. VESICARE [Concomitant]
     Active Substance: SOLIFENACIN SUCCINATE
  8. RATIO?LACTULOSE [Suspect]
     Active Substance: LACTULOSE
  9. BUPROPION XL [Concomitant]
     Active Substance: BUPROPION
     Route: 065
  10. SALBUTAMOL [Concomitant]
     Active Substance: ALBUTEROL
  11. BACLOFEN. [Concomitant]
     Active Substance: BACLOFEN
  12. CEFIXIME. [Concomitant]
     Active Substance: CEFIXIME
  13. LATANOPROST. [Concomitant]
     Active Substance: LATANOPROST
  14. TRUSOPT [Concomitant]
     Active Substance: DORZOLAMIDE HYDROCHLORIDE

REACTIONS (1)
  - Diarrhoea [Recovered/Resolved]
